FAERS Safety Report 13667798 (Version 1)
Quarter: 2017Q2

REPORT INFORMATION
  Report Type: Spontaneous
  Country: US (occurrence: US)
  Receive Date: 20170620
  Receipt Date: 20170620
  Transmission Date: 20170830
  Serious: Yes (Hospitalization)
  Sender: FDA-Public Use
  Company Number: US-ACCORD-052575

PATIENT
  Age: 8 Day
  Sex: Female
  Weight: 2.8 kg

DRUGS (6)
  1. AMIODARONE [Suspect]
     Active Substance: AMIODARONE
     Indication: PRODUCT USED FOR UNKNOWN INDICATION
     Route: 040
  2. MILRINONE [Concomitant]
     Active Substance: MILRINONE
     Dosage: MILRINONE AT 0.5 UG/KG/MIN
  3. DEXMEDETOMIDINE. [Suspect]
     Active Substance: DEXMEDETOMIDINE
     Indication: PRODUCT USED FOR UNKNOWN INDICATION
     Dosage: INITIALLY PATIENT RECEIVED 0.5 UG/KG/H, WITHOUT A LOADING DOSE, THEN INCREASED TO 1 UG/KG/H
  4. EPINEPHRINE. [Concomitant]
     Active Substance: EPINEPHRINE
     Dosage: EPINEPHRINE AT 0.05 UG/KG/MIN,
     Route: 042
  5. NITROGLYCERIN. [Concomitant]
     Active Substance: NITROGLYCERIN
     Dosage: NITROGLYCERIN AT 0.5 UG/KG/MIN
  6. VASOPRESSIN. [Concomitant]
     Active Substance: VASOPRESSIN
     Dosage: 0.0003 U/KG/MIN

REACTIONS (3)
  - Cardiac arrest [Unknown]
  - Hypotension [Unknown]
  - Therapy non-responder [Unknown]
